FAERS Safety Report 7544002-5 (Version None)
Quarter: 2011Q2

REPORT INFORMATION
  Report Type: 
  Country: None (occurrence: None)
  Receive Date: 20110613
  Receipt Date: 20050329
  Transmission Date: 20111010
  Serious: Yes (Other)
  Sender: FDA-Public Use
  Company Number: PHFR2005GB01021

PATIENT
  Sex: Female

DRUGS (1)
  1. CLOZAPINE [Suspect]
     Indication: SCHIZOPHRENIA
     Dosage: UNK, UNK
     Route: 048
     Dates: start: 20040218

REACTIONS (4)
  - CHEST PAIN [None]
  - C-REACTIVE PROTEIN INCREASED [None]
  - ANGINA PECTORIS [None]
  - UPPER RESPIRATORY TRACT INFECTION [None]
